FAERS Safety Report 9471834 (Version 2)
Quarter: 2013Q4

REPORT INFORMATION
  Report Type: Spontaneous
  Country: AU (occurrence: AU)
  Receive Date: 20130822
  Receipt Date: 20131128
  Transmission Date: 20140711
  Serious: Yes (Other)
  Sender: FDA-Public Use
  Company Number: AU-AMGEN-AUSSP2013058168

PATIENT
  Age: 74 Year
  Sex: Male

DRUGS (9)
  1. XGEVA [Suspect]
     Indication: PRODUCT USED FOR UNKNOWN INDICATION
     Dosage: UNK
     Route: 065
     Dates: start: 20120415, end: 20120915
  2. LUCRIN DEPO [Concomitant]
     Route: 065
  3. PANADEINE                          /00116401/ [Concomitant]
     Route: 065
  4. PANTOPRAZOLE [Concomitant]
     Route: 065
  5. PRADAXA [Concomitant]
     Route: 065
  6. SALOFALK                           /00000301/ [Concomitant]
  7. VITAMIN D                          /00318501/ [Concomitant]
     Route: 065
  8. XALATAN [Concomitant]
     Route: 065
  9. ZOLPIDEM TARTRATE [Concomitant]
     Route: 065

REACTIONS (1)
  - Osteonecrosis of jaw [Not Recovered/Not Resolved]
